FAERS Safety Report 18239219 (Version 1)
Quarter: 2020Q3

REPORT INFORMATION
  Report Type: Report from Study
  Country: US (occurrence: US)
  Receive Date: 20200907
  Receipt Date: 20200907
  Transmission Date: 20201103
  Serious: Yes (Other)
  Sender: FDA-Public Use
  Company Number: US-ASTRAZENECA-2020SF09393

PATIENT
  Age: 634 Month
  Sex: Female
  Weight: 77.3 kg

DRUGS (2)
  1. OLAPARIB. [Suspect]
     Active Substance: OLAPARIB
     Indication: INFLAMMATORY CARCINOMA OF THE BREAST
     Route: 048
     Dates: start: 20200628, end: 20200810
  2. RADIOTHERAPY [Suspect]
     Active Substance: RADIATION THERAPY
     Indication: INFLAMMATORY CARCINOMA OF THE BREAST
     Route: 065

REACTIONS (1)
  - Radiation skin injury [Recovered/Resolved]

NARRATIVE: CASE EVENT DATE: 20200803
